FAERS Safety Report 9304530 (Version 2)
Quarter: 2013Q4

REPORT INFORMATION
  Report Type: Report from Study
  Country: MX (occurrence: MX)
  Receive Date: 20130523
  Receipt Date: 20131128
  Transmission Date: 20140711
  Serious: Yes (Hospitalization, Disabling)
  Sender: FDA-Public Use
  Company Number: MX-ROCHE-1227338

PATIENT
  Sex: Male

DRUGS (1)
  1. XELODA [Suspect]
     Indication: COLORECTAL CANCER
     Route: 065

REACTIONS (6)
  - Vomiting [Unknown]
  - Malaise [Unknown]
  - Abnormal faeces [Unknown]
  - Reflux gastritis [Unknown]
  - Neoplasm progression [Unknown]
  - Metastases to bone [Unknown]
